FAERS Safety Report 4520269-2 (Version None)
Quarter: 2004Q4

REPORT INFORMATION
  Report Type: 
  Country: None (occurrence: None)
  Receive Date: 20041201
  Receipt Date: 20041201
  Transmission Date: 20050328
  Serious: Yes (Hospitalization, Other)
  Sender: FDA-Public Use
  Company Number: None

PATIENT
  Age: 59 Year
  Sex: Male
  Weight: 100 kg

DRUGS (7)
  1. DARBOPOETIN ALFA [Suspect]
     Indication: ANAEMIA
     Dosage: 9 MCG/KG (900 MCG SC Q WEDNESDAY)
     Route: 058
     Dates: start: 20040609, end: 20040825
  2. NEUPOGEN [Suspect]
     Indication: ANAEMIA
     Dosage: 2.5 MG/HR (250 MG SC Q WEDNESDAY + SATURDAY)
     Route: 058
     Dates: start: 20040721, end: 20040828
  3. PREDNISONE [Concomitant]
  4. EFFEXOR [Concomitant]
  5. DICLOFEN OC [Concomitant]
  6. ANDROGEN [Concomitant]
  7. DILTIAZEM [Concomitant]

REACTIONS (5)
  - BALANCE DISORDER [None]
  - FALL [None]
  - HEADACHE [None]
  - SUBDURAL HAEMATOMA [None]
  - THERAPY NON-RESPONDER [None]
